FAERS Safety Report 7492196-2 (Version None)
Quarter: 2011Q2

REPORT INFORMATION
  Report Type: 
  Country: None (occurrence: None)
  Receive Date: 20110519
  Receipt Date: 20101101
  Transmission Date: 20111010
  Serious: No
  Sender: FDA-Public Use
  Company Number: US-NOVEN-ALL1-2010-05304

PATIENT
  Sex: Male
  Weight: 32.653 kg

DRUGS (1)
  1. DAYTRANA [Suspect]
     Dosage: 15 MG, 1X/DAY:QD
     Route: 062
     Dates: start: 20091215

REACTIONS (3)
  - PRODUCT QUALITY ISSUE [None]
  - IMPULSIVE BEHAVIOUR [None]
  - DISTURBANCE IN ATTENTION [None]
